FAERS Safety Report 19196061 (Version 2)
Quarter: 2021Q2

REPORT INFORMATION
  Report Type: Spontaneous
  Country: RO (occurrence: RO)
  Receive Date: 20210429
  Receipt Date: 20210430
  Transmission Date: 20210717
  Serious: Yes (Death, Life-Threatening, Hospitalization, Other)
  Sender: FDA-Public Use
  Company Number: RO-AMGEN-ROUSP2021064643

PATIENT
  Age: 51 Year
  Sex: Male

DRUGS (3)
  1. BLINCYTO [Suspect]
     Active Substance: BLINATUMOMAB
     Dosage: UNK
     Route: 042
     Dates: start: 2020
  2. BLINCYTO [Suspect]
     Active Substance: BLINATUMOMAB
     Indication: B PRECURSOR TYPE ACUTE LEUKAEMIA
     Dosage: 28 MICROGRAM, QD
     Route: 042
     Dates: start: 202001, end: 2020
  3. BLINCYTO [Suspect]
     Active Substance: BLINATUMOMAB
     Dosage: UNK
     Route: 042
     Dates: start: 202002, end: 2020

REACTIONS (14)
  - Clostridium difficile infection [Unknown]
  - Acute respiratory failure [Unknown]
  - Disorientation [Unknown]
  - Renal impairment [Unknown]
  - Gastric haemorrhage [Unknown]
  - Candida infection [Unknown]
  - Cognitive disorder [Fatal]
  - Unresponsive to stimuli [Unknown]
  - Generalised tonic-clonic seizure [Unknown]
  - Hepatic function abnormal [Unknown]
  - Confusional state [Unknown]
  - Somnolence [Unknown]
  - Balance disorder [Fatal]
  - Psychomotor hyperactivity [Unknown]

NARRATIVE: CASE EVENT DATE: 2020
